FAERS Safety Report 12915309 (Version 1)
Quarter: 2016Q4

REPORT INFORMATION
  Report Type: Spontaneous
  Country: US (occurrence: US)
  Receive Date: 20161106
  Receipt Date: 20161106
  Transmission Date: 20170207
  Serious: No
  Sender: FDA-Public Use
  Company Number: US-RELYPSA-RLY2016002752

PATIENT
  Sex: Male

DRUGS (10)
  1. VELTASSA [Suspect]
     Active Substance: PATIROMER
     Dosage: 8.4 MG, QOD
     Route: 048
     Dates: start: 2016
  2. VELTASSA [Suspect]
     Active Substance: PATIROMER
     Indication: HYPERKALAEMIA
     Dosage: 8.4 MG, QD
     Route: 048
     Dates: start: 201608, end: 2016
  3. SENSIPAR [Concomitant]
     Active Substance: CINACALCET HYDROCHLORIDE
  4. PHOSLO [Concomitant]
     Active Substance: CALCIUM ACETATE
  5. TRAMADOL. [Concomitant]
     Active Substance: TRAMADOL
  6. NOVOLIN [Concomitant]
     Active Substance: INSULIN HUMAN
  7. CLOPIDOGREL [Concomitant]
     Active Substance: CLOPIDOGREL BISULFATE
  8. SIMVASTATIN. [Concomitant]
     Active Substance: SIMVASTATIN
  9. MIRALAX [Concomitant]
     Active Substance: POLYETHYLENE GLYCOL 3350
  10. GABAPENTIN. [Concomitant]
     Active Substance: GABAPENTIN

REACTIONS (2)
  - Inappropriate schedule of drug administration [Not Recovered/Not Resolved]
  - Constipation [Unknown]

NARRATIVE: CASE EVENT DATE: 2016
